FAERS Safety Report 22541107 (Version 1)
Quarter: 2023Q2

REPORT INFORMATION
  Report Type: Spontaneous
  Country: US (occurrence: None)
  Receive Date: 20230608
  Receipt Date: 20230608
  Transmission Date: 20230721
  Serious: Yes (Other)
  Sender: FDA-Public Use
  Company Number: None

PATIENT
  Sex: Female

DRUGS (5)
  1. CYCLOSPORINE [Suspect]
     Active Substance: CYCLOSPORINE
     Indication: Lung transplant
     Dosage: FREQUENCY : AS DIRECTED;?
     Route: 048
  2. AZITHROMYCIN [Concomitant]
     Active Substance: AZITHROMYCIN
  3. GENGRAF [Concomitant]
     Active Substance: CYCLOSPORINE
  4. INTRAROSA SUP [Concomitant]
  5. METOPROL TAR TAB [Concomitant]

REACTIONS (2)
  - Respiratory disorder [None]
  - Therapy interrupted [None]
